FAERS Safety Report 6251717-8 (Version None)
Quarter: 2009Q2

REPORT INFORMATION
  Report Type: 
  Country: None (occurrence: None)
  Receive Date: 20090630
  Receipt Date: 20090622
  Transmission Date: 20091009
  Serious: Yes (Other)
  Sender: FDA-Public Use
  Company Number: ES-PFIZER INC-2009210427

PATIENT
  Age: 30 Year

DRUGS (3)
  1. LYRICA [Suspect]
     Indication: INSOMNIA
     Dosage: 150 MG, 2X/DAY
     Dates: end: 20090101
  2. LYRICA [Suspect]
     Dosage: 50 MG, 1X/DAY
     Dates: start: 20090101
  3. LYRICA [Suspect]
     Dosage: 75 MG, 1X/DAY

REACTIONS (3)
  - BLOOD TRIGLYCERIDES INCREASED [None]
  - FATIGUE [None]
  - HEPATIC STEATOSIS [None]
